FAERS Safety Report 6807241-4 (Version None)
Quarter: 2010Q2

REPORT INFORMATION
  Report Type: 
  Country: None (occurrence: None)
  Receive Date: 20100628
  Receipt Date: 20100628
  Transmission Date: 20101027
  Serious: Yes (Hospitalization)
  Sender: FDA-Public Use
  Company Number: None

PATIENT
  Sex: Male

DRUGS (1)
  1. BACTRIM [Suspect]
     Indication: WOUND
     Dosage: 2 TABS BID PO
     Route: 048

REACTIONS (8)
  - DECREASED APPETITE [None]
  - HEADACHE [None]
  - PAIN [None]
  - PLATELET COUNT DECREASED [None]
  - PYREXIA [None]
  - STEVENS-JOHNSON SYNDROME [None]
  - TACHYCARDIA [None]
  - WHITE BLOOD CELL COUNT DECREASED [None]
